FAERS Safety Report 7148644-0 (Version None)
Quarter: 2010Q4

REPORT INFORMATION
  Report Type: 
  Country: None (occurrence: None)
  Receive Date: 20101209
  Receipt Date: 20101129
  Transmission Date: 20110411
  Serious: Yes (Other)
  Sender: FDA-Public Use
  Company Number: JP-AMGEN-JPNCT2010008245

PATIENT

DRUGS (15)
  1. PANITUMUMAB [Suspect]
     Indication: COLORECTAL CANCER
     Dosage: 6 MG/KG, Q2WK
     Route: 041
     Dates: start: 20100910, end: 20101108
  2. VITANEURIN [Concomitant]
     Route: 048
  3. ANTIHISTAMINES [Concomitant]
     Indication: PROPHYLAXIS
     Route: 065
  4. CORTICOSTEROIDS [Concomitant]
     Indication: PROPHYLAXIS
     Route: 065
  5. LOPEMIN [Concomitant]
     Route: 048
  6. MYSLEE [Concomitant]
     Route: 048
  7. PARIET [Concomitant]
     Route: 048
  8. ALLEGRA [Concomitant]
     Route: 048
  9. TSUMURA HOCHUUEKKITOU [Concomitant]
     Route: 048
  10. BETAMETHASONE [Concomitant]
     Route: 048
  11. PRORENAL [Concomitant]
     Route: 048
  12. ANPLAG [Concomitant]
     Route: 048
  13. VOLTAREN SUPPO [Concomitant]
     Route: 054
  14. LOXONIN [Concomitant]
     Route: 048
  15. ZOMETA [Concomitant]
     Route: 042

REACTIONS (8)
  - DRY SKIN [None]
  - GLOSSITIS [None]
  - INTESTINAL OBSTRUCTION [None]
  - PARONYCHIA [None]
  - PRURITUS [None]
  - RASH [None]
  - SCIATICA [None]
  - STOMATITIS [None]
